FAERS Safety Report 9584820 (Version 1)
Quarter: 2013Q4

REPORT INFORMATION
  Report Type: Spontaneous
  Country: US (occurrence: US)
  Receive Date: 20131002
  Receipt Date: 20131002
  Transmission Date: 20140711
  Serious: No
  Sender: FDA-Public Use
  Company Number: US-AMGEN-USASP2013055941

PATIENT
  Age: 51 Year
  Sex: Female
  Weight: 65.76 kg

DRUGS (9)
  1. ENBREL [Suspect]
     Indication: PRODUCT USED FOR UNKNOWN INDICATION
     Dosage: 50 MG, QWK
     Route: 058
  2. CLIMARA [Concomitant]
     Dosage: 0.06 MG, UNK
  3. PROTONIX [Concomitant]
     Dosage: 40 MG, UNK
  4. CYMBALTA [Concomitant]
     Dosage: 30 MG, UNK
  5. LORTAB                             /00607101/ [Concomitant]
     Dosage: 5 UNK, UNK
  6. TYLENOL                            /00020001/ [Concomitant]
     Dosage: 325 MG, UNK
  7. MULTIVITAMINS, PLAIN [Concomitant]
     Dosage: UNK
  8. VITAMIN B12                        /00056201/ [Concomitant]
     Dosage: 1000 MUG, UNK
  9. VITAMIN D                          /00107901/ [Concomitant]
     Dosage: 1000 UNIT, UNK

REACTIONS (2)
  - Oropharyngeal pain [Unknown]
  - Muscle spasms [Unknown]
